FAERS Safety Report 12435179 (Version 2)
Quarter: 2016Q4

REPORT INFORMATION
  Report Type: Spontaneous
  Country: US (occurrence: US)
  Receive Date: 20160603
  Receipt Date: 20161212
  Transmission Date: 20170207
  Serious: No
  Sender: FDA-Public Use
  Company Number: US-ROCHE-1711725

PATIENT
  Sex: Female

DRUGS (1)
  1. ACTEMRA [Suspect]
     Active Substance: TOCILIZUMAB
     Indication: TEMPORAL ARTERITIS
     Dosage: SYRINGE
     Route: 058
     Dates: start: 20160210

REACTIONS (3)
  - Pyrexia [Recovered/Resolved]
  - Contusion [Unknown]
  - Neck pain [Unknown]
